FAERS Safety Report 21604529 (Version 1)
Quarter: 2022Q4

REPORT INFORMATION
  Report Type: Report from Study
  Country: US (occurrence: US)
  Receive Date: 20221116
  Receipt Date: 20221116
  Transmission Date: 20230112
  Serious: No
  Sender: FDA-Public Use
  Company Number: US-ABBVIE-4138463

PATIENT
  Sex: Female

DRUGS (2)
  1. HUMIRA [Suspect]
     Active Substance: ADALIMUMAB
     Indication: Rheumatoid arthritis
     Route: 058
  2. Moderna [Concomitant]
     Indication: COVID-19 immunisation
     Route: 030

REACTIONS (8)
  - Herpes zoster [Recovering/Resolving]
  - Chest pain [Unknown]
  - Insomnia [Unknown]
  - Adverse drug reaction [Unknown]
  - Weight increased [Unknown]
  - Swelling [Unknown]
  - Burning sensation [Unknown]
  - Pain [Unknown]
